FAERS Safety Report 4941467-X (Version None)
Quarter: 2006Q1

REPORT INFORMATION
  Report Type: 
  Country: None (occurrence: None)
  Receive Date: 20060313
  Receipt Date: 20060227
  Transmission Date: 20060701
  Serious: Yes (Hospitalization, Other)
  Sender: FDA-Public Use
  Company Number: US-MERCK-0603USA00428

PATIENT
  Age: 62 Year
  Sex: Female
  Weight: 73 kg

DRUGS (18)
  1. VIOXX [Suspect]
     Indication: ARTHRALGIA
     Route: 048
     Dates: start: 20000801, end: 20000901
  2. VIOXX [Suspect]
     Route: 048
     Dates: start: 20000918, end: 20001001
  3. VIOXX [Suspect]
     Route: 048
     Dates: start: 20001016, end: 20010101
  4. VIOXX [Suspect]
     Route: 048
     Dates: start: 20010129
  5. VIOXX [Suspect]
     Route: 048
  6. VIOXX [Suspect]
     Route: 048
     Dates: start: 20010924
  7. VIOXX [Suspect]
     Route: 048
     Dates: end: 20020801
  8. TYLENOL W/ CODEINE NO. 3 [Concomitant]
     Route: 065
  9. ZESTRIL [Suspect]
     Route: 065
  10. DYAZIDE [Suspect]
     Route: 065
  11. MIACALCIN [Concomitant]
     Route: 065
  12. DEPAKOTE [Concomitant]
     Route: 065
  13. AMBIEN [Concomitant]
     Route: 065
  14. NORVASC [Concomitant]
     Route: 065
  15. LOZOL [Concomitant]
     Route: 065
  16. FOSAMAX [Concomitant]
     Route: 048
  17. TUMS [Concomitant]
     Route: 065
  18. SULFAMETHOXAZOLE AND TRIMETHOPRIM [Concomitant]
     Route: 065

REACTIONS (24)
  - ARTHRODESIS [None]
  - BACK PAIN [None]
  - BIPOLAR DISORDER [None]
  - BLOOD CHOLESTEROL INCREASED [None]
  - BLOOD CREATININE INCREASED [None]
  - EMOTIONAL DISORDER [None]
  - FOOT FRACTURE [None]
  - HAEMORRHAGE [None]
  - HYPERTENSION [None]
  - INCORRECT DOSE ADMINISTERED [None]
  - LOW DENSITY LIPOPROTEIN INCREASED [None]
  - MENTAL DISORDER [None]
  - MYOCARDIAL INFARCTION [None]
  - OSTEOPOROSIS [None]
  - OVERDOSE [None]
  - PAIN IN EXTREMITY [None]
  - PHARYNGITIS STREPTOCOCCAL [None]
  - POST PROCEDURAL COMPLICATION [None]
  - RENAL FAILURE [None]
  - RENAL IMPAIRMENT [None]
  - SEDATION [None]
  - SINUSITIS [None]
  - SOMNOLENCE [None]
  - UPPER RESPIRATORY TRACT INFECTION [None]
